FAERS Safety Report 23445401 (Version 1)
Quarter: 2024Q1

REPORT INFORMATION
  Report Type: Spontaneous
  Country: MX (occurrence: MX)
  Receive Date: 20240126
  Receipt Date: 20240126
  Transmission Date: 20240409
  Serious: Yes (Other)
  Sender: FDA-Public Use
  Company Number: MX-ABBVIE-0711707US

PATIENT
  Age: 18 Year
  Sex: Female

DRUGS (4)
  1. BOTOX [Suspect]
     Active Substance: ONABOTULINUMTOXINA
     Indication: Hyperhidrosis
     Dosage: TIME INTERVAL: AS NECESSARY: TOTAL AMOUNT 200 U
     Route: 023
  2. BOTOX [Suspect]
     Active Substance: ONABOTULINUMTOXINA
     Indication: Hyperhidrosis
     Dosage: TIME INTERVAL: AS NECESSARY: 100 U
     Route: 023
  3. BOTOX [Suspect]
     Active Substance: ONABOTULINUMTOXINA
     Indication: Hyperhidrosis
     Dosage: TIME INTERVAL: AS NECESSARY: TOTAL AMOUNT 200 U
     Route: 023
  4. BOTOX [Suspect]
     Active Substance: ONABOTULINUMTOXINA
     Indication: Hyperhidrosis
     Dosage: TIME INTERVAL: AS NECESSARY: 100 U
     Route: 023

REACTIONS (2)
  - Botulism [Recovered/Resolved]
  - Muscular weakness [Recovered/Resolved]
